FAERS Safety Report 5904907-5 (Version None)
Quarter: 2008Q3

REPORT INFORMATION
  Report Type: 
  Country: None (occurrence: None)
  Receive Date: 20080909
  Receipt Date: 20080416
  Transmission Date: 20090109
  Serious: Yes (Hospitalization)
  Sender: FDA-Public Use
  Company Number: 163-20785-08030995

PATIENT
  Age: 61 Year
  Sex: Male

DRUGS (5)
  1. THALOMID [Suspect]
     Indication: MULTIPLE MYELOMA
     Dosage: 200 MG, 4 IN 1 D, ORAL
     Route: 048
     Dates: start: 20080226
  2. DEXAMETHASONE TAB [Concomitant]
  3. CISPLATIN [Concomitant]
  4. ADRIAMYCIN PFS [Concomitant]
  5. ETOPOSIDE [Concomitant]

REACTIONS (4)
  - BLOOD PRESSURE ABNORMAL [None]
  - NEUTROPENIA [None]
  - RENAL FAILURE [None]
  - TACHYCARDIA [None]
